FAERS Safety Report 10675502 (Version 3)
Quarter: 2015Q3

REPORT INFORMATION
  Report Type: Report from Study
  Country: US (occurrence: US)
  Receive Date: 20141224
  Receipt Date: 20150819
  Transmission Date: 20151125
  Serious: No
  Sender: FDA-Public Use
  Company Number: US-GILEAD-2014-0129051

PATIENT
  Age: 64 Year
  Sex: Female

DRUGS (2)
  1. REVATIO [Concomitant]
     Active Substance: SILDENAFIL CITRATE
  2. AMBRISENTAN [Suspect]
     Active Substance: AMBRISENTAN
     Indication: SJOGREN^S SYNDROME
     Dosage: 10 MG, QD
     Route: 065
     Dates: start: 20130528

REACTIONS (3)
  - Dyskinesia [Unknown]
  - Fall [Unknown]
  - Arthropathy [Unknown]
